FAERS Safety Report 6535295-1 (Version None)
Quarter: 2010Q1

REPORT INFORMATION
  Report Type: 
  Country: None (occurrence: None)
  Receive Date: 20100113
  Receipt Date: 20100104
  Transmission Date: 20100710
  Serious: Yes (Other)
  Sender: FDA-Public Use
  Company Number: GB-ROCHE-671563

PATIENT
  Sex: Female

DRUGS (3)
  1. TAMIFLU [Suspect]
     Route: 048
     Dates: start: 20091109, end: 20091111
  2. ALBUTEROL [Concomitant]
     Route: 055
  3. QVAR 40 [Concomitant]
     Route: 055

REACTIONS (1)
  - SALMONELLOSIS [None]
